FAERS Safety Report 8250779-6 (Version None)
Quarter: 2012Q1

REPORT INFORMATION
  Report Type: 
  Country: None (occurrence: None)
  Receive Date: 20120328
  Receipt Date: 20120314
  Transmission Date: 20120608
  Serious: Yes (Hospitalization)
  Sender: FDA-Public Use
  Company Number: UTC-016655

PATIENT
  Age: 67 Year
  Sex: Female

DRUGS (2)
  1. ADCIRCA [Concomitant]
  2. TYVASO [Suspect]
     Indication: PULMONARY ARTERIAL HYPERTENSION
     Dosage: 144 MCG (36 MCG, 4 IN 1 D) INHALATION
     Route: 055
     Dates: start: 20111219

REACTIONS (2)
  - BACTERIAL INFECTION [None]
  - FULL BLOOD COUNT DECREASED [None]
